FAERS Safety Report 21822074 (Version 1)
Quarter: 2023Q1

REPORT INFORMATION
  Report Type: Spontaneous
  Country: US (occurrence: None)
  Receive Date: 20230104
  Receipt Date: 20230104
  Transmission Date: 20230418
  Serious: Yes (Other)
  Sender: FDA-Public Use
  Company Number: None

PATIENT
  Sex: Female

DRUGS (21)
  1. HUMIRA [Suspect]
     Active Substance: ADALIMUMAB
     Indication: Psoriatic arthropathy
     Dosage: 40MG/0.4ML SUBCUTANEOUS??INJECT 40 MG (0.4 ML) UNDER THE SKIN EVERY 2 WEEKS IN THE ABDOMEN OR THIGH.
     Route: 058
     Dates: start: 20201215
  2. ACTOS TAB [Concomitant]
  3. ALBUTEROL [Concomitant]
     Active Substance: ALBUTEROL
  4. BOTOX [Concomitant]
     Active Substance: ONABOTULINUMTOXINA
  5. BUSPIRONE TAB [Concomitant]
  6. DIPHENHYDRAM CAP [Concomitant]
  7. EPIPEN 2-PAK INJ [Concomitant]
  8. FLUOCINONIDE CRE [Concomitant]
  9. FOLIC ACID TAB [Concomitant]
  10. GLIMEPIRIDE TAB [Concomitant]
  11. HYDROXY PAM CAP [Concomitant]
  12. INVOKANA TAB [Concomitant]
  13. JANUMET XR TAB [Concomitant]
  14. LEVETIRACETA TAB [Concomitant]
  15. LORAZEPAM TAB [Concomitant]
  16. LYRICA CAP [Concomitant]
  17. OTEZLA [Concomitant]
     Active Substance: APREMILAST
  18. PRAZOSIN HCL CAP [Concomitant]
  19. PROMETHAZINE [Concomitant]
     Active Substance: PROMETHAZINE HYDROCHLORIDE
  20. VENTOLIN HFA AER [Concomitant]
  21. ZEMBRACE SYM INJ [Concomitant]

REACTIONS (8)
  - Therapy interrupted [None]
  - COVID-19 [None]
  - Escherichia infection [None]
  - Road traffic accident [None]
  - Nonspecific reaction [None]
  - Discomfort [None]
  - Loss of personal independence in daily activities [None]
  - Pain [None]
